FAERS Safety Report 7481036-3 (Version None)
Quarter: 2011Q2

REPORT INFORMATION
  Report Type: 
  Country: None (occurrence: None)
  Receive Date: 20110516
  Receipt Date: 20110505
  Transmission Date: 20111010
  Serious: Yes (Hospitalization)
  Sender: FDA-Public Use
  Company Number: AU-JNJFOC-20110505179

PATIENT
  Age: 52 Year
  Sex: Male

DRUGS (9)
  1. RITONAVIR [Suspect]
     Indication: HIV INFECTION
     Dates: start: 20040625
  2. ABACAVIR SULFATE [Suspect]
     Indication: HIV INFECTION
     Dates: start: 20040625
  3. DARUNAVIR ETHANOLATE [Suspect]
     Indication: HIV INFECTION
     Route: 048
     Dates: start: 20060522
  4. OMEPRAZOLE [Concomitant]
  5. PRAVASTATIN [Concomitant]
     Dates: start: 20110514
  6. ATENOLOL [Concomitant]
     Dates: start: 20020913
  7. IRBESARTAN [Concomitant]
     Dates: start: 20040101
  8. PREGABALIN [Concomitant]
     Dates: start: 20060203
  9. ASPIRIN [Concomitant]
     Dates: start: 20110513

REACTIONS (3)
  - WEIGHT DECREASED [None]
  - LETHARGY [None]
  - CEREBRAL INFARCTION [None]
